FAERS Safety Report 10641337 (Version 3)
Quarter: 2015Q1

REPORT INFORMATION
  Report Type: Spontaneous
  Country: GB (occurrence: GB)
  Receive Date: 20141209
  Receipt Date: 20150211
  Transmission Date: 20150720
  Serious: Yes (Hospitalization)
  Sender: FDA-Public Use
  Company Number: PHFR2013GB002106

PATIENT
  Age: 72 Year
  Sex: Female

DRUGS (15)
  1. METFORMIN [Concomitant]
     Active Substance: METFORMIN HYDROCHLORIDE
     Indication: TYPE 2 DIABETES MELLITUS
     Dosage: 2000 MG, DAILY
     Route: 048
     Dates: start: 20140707
  2. GLICLAZIDE [Concomitant]
     Active Substance: GLICLAZIDE
     Indication: TYPE 2 DIABETES MELLITUS
     Dosage: 80 MG, DAILY
     Route: 048
     Dates: start: 20140707
  3. PAROXETINE [Concomitant]
     Active Substance: PAROXETINE\PAROXETINE HYDROCHLORIDE
     Indication: AFFECTIVE DISORDER
     Dosage: 40 MG, DAILY
     Route: 048
  4. CLOZARIL [Suspect]
     Active Substance: CLOZAPINE
     Indication: SCHIZOPHRENIA
     Dosage: 87.5 MG, QD
     Route: 048
     Dates: start: 20121105
  5. SOLIFENACIN [Concomitant]
     Active Substance: SOLIFENACIN
     Indication: STRESS URINARY INCONTINENCE
     Dosage: 5 MG, DAILY
     Route: 048
     Dates: start: 20140707
  6. MIRTAZAPINE. [Concomitant]
     Active Substance: MIRTAZAPINE
     Indication: DEPRESSION
     Dosage: 45 MG, QD
     Route: 048
     Dates: start: 20140707
  7. SALBUTAMOL [Concomitant]
     Active Substance: ALBUTEROL
     Indication: ASTHMA
     Dosage: 1 TO 2 DF, PRN
     Route: 065
  8. ATENOLOL. [Concomitant]
     Active Substance: ATENOLOL
     Indication: HYPERTENSION
     Dosage: 100 MG, DAILY
     Route: 048
     Dates: start: 20140707
  9. RAMIPRIL. [Concomitant]
     Active Substance: RAMIPRIL
     Indication: HYPERTENSION
     Dosage: 2.5 MG, DAILY
     Route: 048
     Dates: start: 20140707
  10. SIMVASTATIN. [Concomitant]
     Active Substance: SIMVASTATIN
     Indication: HYPERCHOLESTEROLAEMIA
  11. LORAZEPAM. [Concomitant]
     Active Substance: LORAZEPAM
     Indication: ASTHMA
     Dosage: 0.5 TO 1 MG, PRN
     Route: 048
     Dates: start: 20140903
  12. ATENOLOL. [Concomitant]
     Active Substance: ATENOLOL
     Dosage: 75 MG, UNK
     Route: 048
     Dates: start: 20140707
  13. ACETYLSALICYLIC ACID W/PARACETAMOL [Concomitant]
     Indication: ARTHRITIS
     Dosage: 1000 MG, BID
     Route: 048
     Dates: start: 20140707
  14. SOLIFENACIN [Concomitant]
     Active Substance: SOLIFENACIN
     Indication: URINARY INCONTINENCE
  15. SIMVASTATIN. [Concomitant]
     Active Substance: SIMVASTATIN
     Indication: BLOOD CHOLESTEROL INCREASED
     Dosage: 40 MG, DAILY
     Route: 048
     Dates: start: 20140707

REACTIONS (13)
  - Tachycardia [Unknown]
  - Infection [Unknown]
  - Nasopharyngitis [Unknown]
  - Urinary incontinence [Unknown]
  - Urosepsis [Recovered/Resolved]
  - Enuresis [Not Recovered/Not Resolved]
  - Haemoglobin decreased [Recovered/Resolved]
  - Vomiting [Unknown]
  - White blood cell count increased [Not Recovered/Not Resolved]
  - Oxygen saturation decreased [Unknown]
  - Respiratory rate increased [Unknown]
  - Urinary tract infection [Unknown]
  - Eosinophil count increased [Unknown]

NARRATIVE: CASE EVENT DATE: 20130404
